FAERS Safety Report 6166720-6 (Version None)
Quarter: 2009Q2

REPORT INFORMATION
  Report Type: 
  Country: None (occurrence: None)
  Receive Date: 20090423
  Receipt Date: 20090423
  Transmission Date: 20091009
  Serious: No
  Sender: FDA-Public Use
  Company Number: None

PATIENT
  Age: 46 Year
  Sex: Female
  Weight: 72.5755 kg

DRUGS (1)
  1. LYRICA [Suspect]
     Indication: FIBROMYALGIA
     Dosage: 100 MG BEDTIME PO
     Route: 048
     Dates: start: 20090415, end: 20090422

REACTIONS (5)
  - FEELING OF DESPAIR [None]
  - INSOMNIA [None]
  - MUSCULAR WEAKNESS [None]
  - STOMATITIS [None]
  - SUICIDAL IDEATION [None]
